FAERS Safety Report 13486536 (Version 1)
Quarter: 2017Q2

REPORT INFORMATION
  Report Type: Spontaneous
  Country: NL (occurrence: NL)
  Receive Date: 20170426
  Receipt Date: 20170426
  Transmission Date: 20170830
  Serious: Yes (Other)
  Sender: FDA-Public Use
  Company Number: NL-UCBSA-2017016221

PATIENT
  Age: 14 Year
  Sex: Male

DRUGS (3)
  1. METHYLPHENIDATE HYDROCHLORIDE. [Suspect]
     Active Substance: METHYLPHENIDATE HYDROCHLORIDE
     Indication: ATTENTION DEFICIT/HYPERACTIVITY DISORDER
     Dosage: 40 MG, ONCE DAILY (QD), CAPSULE
     Route: 048
     Dates: start: 201612
  2. METHYLPHENIDATE HYDROCHLORIDE. [Suspect]
     Active Substance: METHYLPHENIDATE HYDROCHLORIDE
     Indication: AUTISM SPECTRUM DISORDER
     Dosage: 50 MG, ONCE DAILY (QD)
     Route: 048
     Dates: start: 20170111, end: 2017
  3. DETRUSITOL [Suspect]
     Active Substance: TOLTERODINE TARTRATE
     Indication: POLLAKIURIA
     Dosage: UNK

REACTIONS (6)
  - Abdominal pain [Unknown]
  - Fatigue [Unknown]
  - Urinary retention [Unknown]
  - Pollakiuria [Unknown]
  - Diarrhoea [Unknown]
  - Bladder spasm [Unknown]

NARRATIVE: CASE EVENT DATE: 20170125
